FAERS Safety Report 9568652 (Version 1)
Quarter: 2013Q3

REPORT INFORMATION
  Report Type: Spontaneous
  Country: US (occurrence: US)
  Receive Date: 20130930
  Receipt Date: 20130930
  Transmission Date: 20140515
  Serious: No
  Sender: FDA-Public Use
  Company Number: US-AMGEN-USASP2013062107

PATIENT
  Age: 26 Year
  Sex: 0

DRUGS (8)
  1. ENBREL [Suspect]
     Indication: PRODUCT USED FOR UNKNOWN INDICATION
     Dosage: 50 MG, 2 TIMES/WK
     Route: 065
     Dates: start: 20130719
  2. GABAPENTIN [Concomitant]
     Dosage: 300 MG, TID
     Route: 048
  3. LIDODERM [Concomitant]
     Dosage: UNK
  4. ZITHROMAX [Concomitant]
     Dosage: UNK
  5. KENALOG                            /00031902/ [Concomitant]
     Dosage: UNK
  6. LIDEX [Concomitant]
     Dosage: UNK
  7. AMBIEN [Concomitant]
     Dosage: UNK
  8. NIZORAL [Concomitant]
     Dosage: 2 %, UNK

REACTIONS (1)
  - Nausea [Not Recovered/Not Resolved]
